FAERS Safety Report 22331658 (Version 1)
Quarter: 2023Q2

REPORT INFORMATION
  Report Type: Spontaneous
  Country: US (occurrence: None)
  Receive Date: 20230515
  Receipt Date: 20230515
  Transmission Date: 20230722
  Serious: No
  Sender: FDA-Public Use
  Company Number: None

PATIENT
  Age: 54 Year
  Sex: Female
  Weight: 68.04 kg

DRUGS (1)
  1. WEGOVY [Suspect]
     Active Substance: SEMAGLUTIDE
     Indication: Obesity
     Dosage: 1 MG WEEKLY SUBCUTANEOUS?
     Route: 058
     Dates: start: 20230512, end: 20230515

REACTIONS (6)
  - Hypoaesthesia [None]
  - Limb discomfort [None]
  - Paraesthesia [None]
  - Injection site hypoaesthesia [None]
  - Injection site discomfort [None]
  - Injection site paraesthesia [None]

NARRATIVE: CASE EVENT DATE: 20230512
